FAERS Safety Report 4435071-X (Version None)
Quarter: 2004Q3

REPORT INFORMATION
  Report Type: 
  Country: None (occurrence: None)
  Receive Date: 20040827
  Receipt Date: 20040823
  Transmission Date: 20050211
  Serious: Yes (Death)
  Sender: FDA-Public Use
  Company Number: US-JNJFOC-20040502151

PATIENT
  Sex: Female
  Weight: 153.32 kg

DRUGS (8)
  1. RISPERDAL [Suspect]
     Indication: BIPOLAR DISORDER
     Route: 049
  2. DEPAKOTE [Concomitant]
     Route: 049
  3. CELEXA [Concomitant]
     Route: 049
  4. NOLVADEX [Concomitant]
     Route: 049
  5. ALBUTEROL [Concomitant]
     Dosage: 2 PUFFS EVERY 4 HOURS PRN FOR SOB
     Route: 049
  6. PROTONIX [Concomitant]
  7. MAXZIDE [Concomitant]
     Route: 049
  8. MAXZIDE [Concomitant]
     Dosage: 75-25 MG
     Route: 049

REACTIONS (1)
  - DEATH [None]
